FAERS Safety Report 14248832 (Version 2)
Quarter: 2018Q1

REPORT INFORMATION
  Report Type: Spontaneous
  Country: JP (occurrence: JP)
  Receive Date: 20171204
  Receipt Date: 20180212
  Transmission Date: 20180508
  Serious: Yes (Hospitalization, Other)
  Sender: FDA-Public Use
  Company Number: JP-PFIZER INC-2017516369

PATIENT
  Age: 49 Year
  Sex: Male
  Weight: 93 kg

DRUGS (14)
  1. DIOVAN [Concomitant]
     Active Substance: VALSARTAN
     Indication: HYPERTENSION
     Dosage: 1 DF, 1X/DAY
     Route: 048
  2. ZITHROMAC SR 2G [Suspect]
     Active Substance: AZITHROMYCIN MONOHYDRATE
     Indication: SKIN INFECTION
     Dosage: 2 G, SINGLE
     Route: 048
     Dates: start: 20171127, end: 20171127
  3. ZITHROMAC SR 2G [Suspect]
     Active Substance: AZITHROMYCIN MONOHYDRATE
     Indication: SWELLING FACE
  4. LOXONIN [Suspect]
     Active Substance: LOXOPROFEN SODIUM
     Indication: SWELLING FACE
     Dosage: 60 MG, 1X/DAY
     Route: 048
     Dates: start: 20171124, end: 20171126
  5. AMLODIPINE [Concomitant]
     Active Substance: AMLODIPINE BESYLATE
     Indication: HYPERTENSION
     Dosage: 1 DF, 1X/DAY
     Route: 048
  6. XYZAL [Concomitant]
     Active Substance: LEVOCETIRIZINE DIHYDROCHLORIDE
     Indication: RHINITIS ALLERGIC
     Dosage: 1 DF, DAILY
     Route: 048
     Dates: start: 20170127
  7. TRESIBA [Concomitant]
     Active Substance: INSULIN DEGLUDEC
     Indication: DIABETES MELLITUS
     Dosage: 20 IU, 1X/DAY
     Route: 058
     Dates: start: 20161007
  8. BAYASPIRIN [Concomitant]
     Active Substance: ASPIRIN
     Dosage: 1 DF, 1X/DAY
     Route: 048
     Dates: end: 20171220
  9. PIOGLITAZONE. [Concomitant]
     Active Substance: PIOGLITAZONE
     Indication: DIABETES MELLITUS
     Dosage: 1 DF, 1X/DAY
     Route: 048
     Dates: end: 20171220
  10. VICTOZA [Concomitant]
     Active Substance: LIRAGLUTIDE
     Indication: DIABETES MELLITUS
     Dosage: 0.3 MG, 1X/DAY
     Route: 058
     Dates: start: 20161020
  11. NOVORAPID [Concomitant]
     Active Substance: INSULIN ASPART
     Indication: DIABETES MELLITUS
     Dosage: 150-200 IU, DAILY
     Route: 058
     Dates: start: 20161007, end: 20171220
  12. FEBURIC [Concomitant]
     Active Substance: FEBUXOSTAT
     Indication: HYPERURICAEMIA
     Dosage: 2 DF, 1X/DAY
     Route: 048
  13. CRESTOR [Concomitant]
     Active Substance: ROSUVASTATIN CALCIUM
     Indication: HYPERLIPIDAEMIA
     Dosage: 1 DF, 1X/DAY
     Route: 048
  14. METGLUCO [Concomitant]
     Active Substance: METFORMIN HYDROCHLORIDE
     Indication: DIABETES MELLITUS
     Dosage: 2 DF, 3X/DAY
     Route: 048
     Dates: end: 20171220

REACTIONS (2)
  - Renal tubular necrosis [Recovering/Resolving]
  - Acute kidney injury [Recovering/Resolving]

NARRATIVE: CASE EVENT DATE: 20171129
